FAERS Safety Report 6196985-6 (Version None)
Quarter: 2009Q2

REPORT INFORMATION
  Report Type: 
  Country: None (occurrence: None)
  Receive Date: 20090520
  Receipt Date: 20090513
  Transmission Date: 20091009
  Serious: Yes (Other)
  Sender: FDA-Public Use
  Company Number: PHHY2009ES18241

PATIENT
  Age: 76 Year
  Sex: Male

DRUGS (2)
  1. PAMIDRONATE DISODIUM [Suspect]
     Indication: HYPERCALCAEMIA
     Dosage: UNK
     Dates: start: 20010114, end: 20070714
  2. ZOMETA [Interacting]
     Indication: HYPERCALCAEMIA
     Dosage: 4 MG, QMO
     Route: 042
     Dates: start: 20021211, end: 20060617

REACTIONS (4)
  - DRUG INTERACTION [None]
  - OSTEONECROSIS [None]
  - PLASMACYTOMA [None]
  - TOOTH EXTRACTION [None]
